FAERS Safety Report 9185831 (Version 2)
Quarter: 2013Q1

REPORT INFORMATION
  Report Type: Spontaneous
  Country: CH (occurrence: CH)
  Receive Date: 20130325
  Receipt Date: 20130327
  Transmission Date: 20140127
  Serious: Yes (Other)
  Sender: FDA-Public Use
  Company Number: CH-TEVA-391908ISR

PATIENT
  Age: 22 Year
  Sex: Male

DRUGS (3)
  1. BLEOMYCIN [Suspect]
     Indication: TESTIS CANCER
     Route: 065
     Dates: start: 2006, end: 2006
  2. ETOPOSIDE [Suspect]
     Indication: TESTIS CANCER
     Route: 065
     Dates: start: 2006, end: 2006
  3. CISPLATIN [Suspect]
     Indication: TESTIS CANCER
     Route: 065
     Dates: start: 2006, end: 2006

REACTIONS (1)
  - Acute myeloid leukaemia [Not Recovered/Not Resolved]
